FAERS Safety Report 10234288 (Version 1)
Quarter: 2014Q2

REPORT INFORMATION
  Report Type: Spontaneous
  Country: US (occurrence: US)
  Receive Date: 20140612
  Receipt Date: 20140612
  Transmission Date: 20141212
  Serious: Yes (Other)
  Sender: FDA-Public Use
  Company Number: US-B.I. PHARMACEUTICALS,INC./RIDGEFIELD-2014-BI-25738BP

PATIENT
  Sex: Female
  Weight: 73 kg

DRUGS (8)
  1. DULCOLAX TABLETS [Suspect]
     Indication: CONSTIPATION
     Dosage: 10 MG
     Route: 048
     Dates: start: 2010
  2. MIRALAX [Concomitant]
     Indication: CONSTIPATION
     Dosage: DOSE PER APPLICATRION: 1 CAPFUL; DAILY DOSE: 1 CAPFUL
     Route: 048
     Dates: start: 2010
  3. CELEBREX [Concomitant]
     Indication: ARTHRITIS
     Dosage: 200 MG
     Route: 048
     Dates: start: 2006
  4. LOVASTATIN [Concomitant]
     Indication: BLOOD CHOLESTEROL INCREASED
     Dosage: 20 MG
     Route: 048
     Dates: start: 2006
  5. LANSOPRAZOLE [Concomitant]
     Indication: DYSPEPSIA
     Dosage: 30 MG
     Route: 048
     Dates: start: 2006
  6. BABY ASPIRIN [Concomitant]
     Indication: PROPHYLAXIS
     Dosage: 80 MG
     Route: 048
     Dates: start: 2006
  7. CLONAZEPAM [Concomitant]
     Indication: INSOMNIA
     Dosage: 1 MG
     Route: 048
     Dates: start: 2004
  8. CLONAZEPAM [Concomitant]
     Indication: ANXIETY

REACTIONS (5)
  - Macular degeneration [Not Recovered/Not Resolved]
  - Glaucoma [Not Recovered/Not Resolved]
  - Bladder prolapse [Not Recovered/Not Resolved]
  - Gait disturbance [Not Recovered/Not Resolved]
  - Off label use [Unknown]
